FAERS Safety Report 6542258-9 (Version None)
Quarter: 2010Q1

REPORT INFORMATION
  Report Type: 
  Country: None (occurrence: None)
  Receive Date: 20100119
  Receipt Date: 20100108
  Transmission Date: 20100710
  Serious: Yes (Other)
  Sender: FDA-Public Use
  Company Number: IN-JNJFOC-20100104655

PATIENT

DRUGS (1)
  1. REMICADE [Suspect]
     Indication: COLITIS ULCERATIVE
     Route: 042

REACTIONS (13)
  - ANAL FISTULA [None]
  - COLITIS ULCERATIVE [None]
  - FISTULA [None]
  - IMPAIRED HEALING [None]
  - INCISIONAL HERNIA [None]
  - INTESTINAL OBSTRUCTION [None]
  - INTESTINAL PERFORATION [None]
  - POST PROCEDURAL COMPLICATION [None]
  - PURULENT DISCHARGE [None]
  - SUBCUTANEOUS ABSCESS [None]
  - SURGERY [None]
  - THROMBOSIS [None]
  - WAIST CIRCUMFERENCE INCREASED [None]
